FAERS Safety Report 5079539-4 (Version None)
Quarter: 2006Q3

REPORT INFORMATION
  Report Type: 
  Country: None (occurrence: None)
  Receive Date: 20060814
  Receipt Date: 20060427
  Transmission Date: 20061208
  Serious: No
  Sender: FDA-Public Use
  Company Number: US-BRISTOL-MYERS SQUIBB COMPANY-13358924

PATIENT
  Age: 44 Year
  Sex: Female
  Weight: 89 kg

DRUGS (5)
  1. GLUCOVANCE [Suspect]
     Indication: DIABETES MELLITUS NON-INSULIN-DEPENDENT
     Dosage: DOSAGE FORM = 2.5 MG/500 MG
  2. ENALAPRIL MALEATE [Concomitant]
  3. NEXIUM [Concomitant]
  4. ADVAIR DISKUS 100/50 [Concomitant]
  5. ALBUTEROL [Concomitant]

REACTIONS (1)
  - BLOOD GLUCOSE INCREASED [None]
